FAERS Safety Report 18258668 (Version 1)
Quarter: 2020Q3

REPORT INFORMATION
  Report Type: Spontaneous
  Country: NO (occurrence: NO)
  Receive Date: 20200911
  Receipt Date: 20200911
  Transmission Date: 20201103
  Serious: Yes (Hospitalization)
  Sender: FDA-Public Use
  Company Number: NO-ALLERGAN-2034272US

PATIENT
  Sex: Female
  Weight: 50 kg

DRUGS (3)
  1. VITAMIN D [Concomitant]
     Active Substance: VITAMIN D NOS
     Indication: PRODUCT USED FOR UNKNOWN INDICATION
  2. VITAMIN B12 [Concomitant]
     Active Substance: CYANOCOBALAMIN
     Indication: PRODUCT USED FOR UNKNOWN INDICATION
  3. MESALAZINE UNK [Suspect]
     Active Substance: MESALAMINE
     Indication: GASTROINTESTINAL INFLAMMATION
     Dosage: 1 G, Q12H (1 MORNING, 1 EVENING)
     Dates: start: 20200813, end: 20200827

REACTIONS (11)
  - Palpitations [Recovered/Resolved]
  - Diarrhoea [Recovering/Resolving]
  - Angina pectoris [Recovered/Resolved]
  - General physical health deterioration [Recovered/Resolved]
  - Chest discomfort [Recovered/Resolved]
  - Presyncope [Recovered/Resolved]
  - Hypoaesthesia oral [Recovering/Resolving]
  - Pharyngeal swelling [Recovering/Resolving]
  - Dizziness [Recovered/Resolved]
  - Abdominal pain [Recovering/Resolving]
  - Pharyngeal hypoaesthesia [Recovering/Resolving]

NARRATIVE: CASE EVENT DATE: 20200813
